FAERS Safety Report 9361011 (Version 1)
Quarter: 2013Q2

REPORT INFORMATION
  Report Type: Spontaneous
  Country: US (occurrence: None)
  Receive Date: 20130618
  Receipt Date: 20130618
  Transmission Date: 20140414
  Serious: Yes (Hospitalization, Other)
  Sender: FDA-Public Use
  Company Number: DAV-AE-MTX-13-36

PATIENT
  Age: 64 Year
  Sex: Female

DRUGS (3)
  1. METHOTREXATE [Suspect]
     Indication: RHEUMATOID ARTHRITIS
     Dosage: (8TABS/1X/WK)
     Route: 048
     Dates: start: 2010, end: 20130214
  2. PREDNISONE [Concomitant]
  3. FOLIC ACID [Concomitant]

REACTIONS (4)
  - Pneumonia [None]
  - Respiratory failure [None]
  - Interstitial lung disease [None]
  - Pulmonary toxicity [None]
